FAERS Safety Report 25331974 (Version 1)
Quarter: 2025Q2

REPORT INFORMATION
  Report Type: Other
  Country: CN (occurrence: CN)
  Receive Date: 20250519
  Receipt Date: 20250519
  Transmission Date: 20250716
  Serious: Yes (Other)
  Sender: Kanchan Healthcare
  Company Number: CN-Kanchan Healthcare INC-2176991

PATIENT
  Age: 24 Year
  Sex: Male
  Weight: 50 kg

DRUGS (12)
  1. ETHAMBUTOL HYDROCHLORIDE [Suspect]
     Active Substance: ETHAMBUTOL HYDROCHLORIDE
     Indication: Tuberculosis
  2. ISONIAZID [Suspect]
     Active Substance: ISONIAZID
  3. Matemacrolate [Concomitant]
  4. UNSPECIFIED INGREDIENT [Concomitant]
     Active Substance: UNSPECIFIED INGREDIENT
  5. PREDNISONE [Concomitant]
     Active Substance: PREDNISONE
  6. TACROLIMUS [Concomitant]
     Active Substance: TACROLIMUS
  7. BASILIXIMAB [Concomitant]
     Active Substance: BASILIXIMAB
  8. MICAFUNGIN [Concomitant]
     Active Substance: MICAFUNGIN SODIUM
  9. GANCICLOVIR [Concomitant]
     Active Substance: GANCICLOVIR
  10. LEVOFLOXACIN [Concomitant]
     Active Substance: LEVOFLOXACIN
  11. PYRAZINAMIDE [Suspect]
     Active Substance: PYRAZINAMIDE
  12. RIFAMPIN [Suspect]
     Active Substance: RIFAMPIN

REACTIONS (1)
  - Neurotoxicity [Recovering/Resolving]
